FAERS Safety Report 23809194 (Version 3)
Quarter: 2024Q3

REPORT INFORMATION
  Report Type: Report from Study
  Country: JP (occurrence: JP)
  Receive Date: 20240502
  Receipt Date: 20240923
  Transmission Date: 20241016
  Serious: Yes (Hospitalization, Other)
  Sender: TAKEDA
  Company Number: JP-JNJFOC-20240467467

PATIENT
  Age: 83 Year
  Sex: Male
  Weight: 55.6 kg

DRUGS (37)
  1. BORTEZOMIB [Suspect]
     Active Substance: BORTEZOMIB
     Indication: Plasma cell myeloma
     Dosage: 1.7 MILLIGRAM
     Route: 065
     Dates: start: 20230824, end: 20231005
  2. DECADRON [Suspect]
     Active Substance: DEXAMETHASONE
     Indication: Plasma cell myeloma
     Dosage: 20 MILLIGRAM, 1/WEEK
     Route: 048
     Dates: start: 20230824, end: 20231012
  3. LEUPROLIDE ACETATE [Suspect]
     Active Substance: ISOPROPYL ALCOHOL\LEUPROLIDE ACETATE
     Indication: Product used for unknown indication
     Dosage: 3.75 MILLIGRAM, Q4WEEKS
     Route: 065
     Dates: start: 20230914, end: 20231012
  4. AMLODIPINE [Suspect]
     Active Substance: AMLODIPINE BESYLATE
     Indication: Product used for unknown indication
     Dosage: UNK
     Route: 048
     Dates: start: 2023, end: 20230901
  5. DARATUMUMAB [Suspect]
     Active Substance: DARATUMUMAB
     Indication: Plasma cell myeloma
     Dosage: 1800 MILLIGRAM, QD
     Route: 058
     Dates: start: 20230824, end: 20230824
  6. DARATUMUMAB [Suspect]
     Active Substance: DARATUMUMAB
     Dosage: 1800 MILLIGRAM, QD
     Route: 058
     Dates: start: 20230831, end: 20230831
  7. DARATUMUMAB [Suspect]
     Active Substance: DARATUMUMAB
     Dosage: 1800 MILLIGRAM, QD
     Route: 058
     Dates: start: 20230907, end: 20230907
  8. DARATUMUMAB [Suspect]
     Active Substance: DARATUMUMAB
     Dosage: 1800 MILLIGRAM, QD
     Route: 058
     Dates: start: 20230914, end: 20230914
  9. DARATUMUMAB [Suspect]
     Active Substance: DARATUMUMAB
     Dosage: 1800 MILLIGRAM, QD
     Route: 058
     Dates: start: 20230921, end: 20230921
  10. DARATUMUMAB [Suspect]
     Active Substance: DARATUMUMAB
     Dosage: 1800 MILLIGRAM, QD
     Route: 058
     Dates: start: 20230928, end: 20230928
  11. DARATUMUMAB [Suspect]
     Active Substance: DARATUMUMAB
     Dosage: 1800 MILLIGRAM, QD
     Route: 058
     Dates: start: 20231005, end: 20231005
  12. DARATUMUMAB [Suspect]
     Active Substance: DARATUMUMAB
     Dosage: 1800 MILLIGRAM, QD
     Route: 058
     Dates: start: 20231012, end: 20231012
  13. TAPENTADOL HYDROCHLORIDE [Suspect]
     Active Substance: TAPENTADOL HYDROCHLORIDE
     Indication: Spinal compression fracture
     Dosage: 100 MILLIGRAM, QD
     Route: 048
     Dates: start: 20230914, end: 20230927
  14. TAPENTADOL HYDROCHLORIDE [Suspect]
     Active Substance: TAPENTADOL HYDROCHLORIDE
     Indication: Cancer pain
     Dosage: 150 MILLIGRAM, QD
     Route: 048
     Dates: start: 20230928, end: 20231002
  15. TAPENTADOL HYDROCHLORIDE [Suspect]
     Active Substance: TAPENTADOL HYDROCHLORIDE
     Indication: Pain in extremity
     Dosage: 100 MILLIGRAM, QD
     Route: 048
     Dates: start: 20231003
  16. TAPENTADOL HYDROCHLORIDE [Suspect]
     Active Substance: TAPENTADOL HYDROCHLORIDE
     Indication: Pain in extremity
  17. TAPENTADOL HYDROCHLORIDE [Suspect]
     Active Substance: TAPENTADOL HYDROCHLORIDE
     Indication: Pain in extremity
  18. OXYCODONE HYDROCHLORIDE [Suspect]
     Active Substance: OXYCODONE HYDROCHLORIDE
     Indication: Spinal compression fracture
     Dosage: 20 MILLIGRAM
     Route: 048
     Dates: start: 20230908, end: 20230913
  19. OXYCODONE HYDROCHLORIDE [Suspect]
     Active Substance: OXYCODONE HYDROCHLORIDE
     Indication: Cancer pain
  20. OXYCODONE HYDROCHLORIDE [Suspect]
     Active Substance: OXYCODONE HYDROCHLORIDE
     Indication: Pain in extremity
  21. OXYCODONE HYDROCHLORIDE [Suspect]
     Active Substance: OXYCODONE HYDROCHLORIDE
     Indication: Pain in extremity
  22. OXYCODONE HYDROCHLORIDE TRIHYDRATE [Suspect]
     Active Substance: OXYCODONE HYDROCHLORIDE TRIHYDRATE
     Indication: Spinal compression fracture
     Dosage: 2.5 MILLIGRAM
     Route: 048
     Dates: start: 20230901, end: 20230910
  23. OXYCODONE HYDROCHLORIDE TRIHYDRATE [Suspect]
     Active Substance: OXYCODONE HYDROCHLORIDE TRIHYDRATE
     Indication: Cancer pain
     Dosage: 5 MILLIGRAM
     Route: 048
     Dates: start: 20230911
  24. OXYCODONE HYDROCHLORIDE TRIHYDRATE [Suspect]
     Active Substance: OXYCODONE HYDROCHLORIDE TRIHYDRATE
     Indication: Pain in extremity
  25. OXYCODONE HYDROCHLORIDE TRIHYDRATE [Suspect]
     Active Substance: OXYCODONE HYDROCHLORIDE TRIHYDRATE
     Indication: Pain in extremity
  26. ENTRESTO [Suspect]
     Active Substance: SACUBITRIL\VALSARTAN
     Indication: Product used for unknown indication
     Dosage: 400 MILLIGRAM
     Route: 048
     Dates: start: 2023, end: 20231001
  27. HUMAN RED BLOOD CELL [Concomitant]
     Active Substance: HUMAN RED BLOOD CELL
     Indication: Anaemia
     Dosage: UNK, QD
     Route: 065
     Dates: start: 20230919, end: 20230919
  28. HUMAN RED BLOOD CELL [Concomitant]
     Active Substance: HUMAN RED BLOOD CELL
     Dosage: UNK, QD
     Route: 065
     Dates: start: 20231009, end: 20231009
  29. HUMAN RED BLOOD CELL [Concomitant]
     Active Substance: HUMAN RED BLOOD CELL
     Dosage: UNK, QD
     Route: 065
     Dates: start: 20231109, end: 20231109
  30. NOREPINEPHRINE [Concomitant]
     Active Substance: NOREPINEPHRINE\NOREPINEPHRINE BITARTRATE
     Indication: Blood pressure decreased
     Dosage: 5 MILLIGRAM, QD
     Route: 065
     Dates: start: 20231001, end: 20231001
  31. NOREPINEPHRINE [Concomitant]
     Active Substance: NOREPINEPHRINE\NOREPINEPHRINE BITARTRATE
     Dosage: 5 MILLIGRAM, QD
     Route: 065
     Dates: start: 20231016, end: 20231016
  32. MEROPENEM [Concomitant]
     Active Substance: MEROPENEM
     Indication: Pyrexia
     Dosage: 1 GRAM, QD
     Route: 042
     Dates: start: 20231017, end: 20231029
  33. MICAFUNGIN SODIUM [Concomitant]
     Active Substance: MICAFUNGIN SODIUM
     Indication: Pyrexia
     Dosage: 150 MILLIGRAM, QD
     Route: 042
     Dates: start: 20231026, end: 20231103
  34. PIPERACILLIN AND TAZOBACTAM [Concomitant]
     Active Substance: PIPERACILLIN SODIUM\TAZOBACTAM SODIUM
     Indication: Pyrexia
     Dosage: 13.5 GRAM, QD
     Route: 042
     Dates: start: 20231030, end: 20231110
  35. PENTAMIDINE [Concomitant]
     Active Substance: PENTAMIDINE
     Indication: Pneumocystis jirovecii pneumonia
     Dosage: 150 MILLIGRAM, QD
     Route: 065
     Dates: start: 20231030, end: 20231110
  36. SOLDEM 3A [Concomitant]
     Active Substance: CARBOHYDRATES\POTASSIUM CHLORIDE\SODIUM CHLORIDE\SODIUM LACTATE
     Indication: Decreased appetite
     Dosage: 500 MILLILITER, QD
     Route: 065
     Dates: start: 20231001, end: 20231005
  37. AMINO ACIDS\DEXTROSE\ELECTROLYTES NOS\VITAMINS [Concomitant]
     Active Substance: AMINO ACIDS\DEXTROSE\ELECTROLYTES NOS\VITAMINS
     Indication: Decreased appetite
     Dosage: 1000 MILLILITER, QD
     Route: 065
     Dates: start: 20231006

REACTIONS (10)
  - White blood cell count decreased [Recovered/Resolved]
  - Anaemia [Recovered/Resolved]
  - Platelet count decreased [Recovered/Resolved]
  - Blood pressure decreased [Recovered/Resolved]
  - Pneumocystis jirovecii pneumonia [Recovered/Resolved]
  - Somnolence [Not Recovered/Not Resolved]
  - C-reactive protein increased [Recovered/Resolved]
  - Delirium [Recovering/Resolving]
  - Decreased appetite [Not Recovered/Not Resolved]
  - Pyrexia [Recovered/Resolved]

NARRATIVE: CASE EVENT DATE: 20230826
